FAERS Safety Report 9007422 (Version 1)
Quarter: 2013Q1

REPORT INFORMATION
  Report Type: Spontaneous
  Country: US (occurrence: US)
  Receive Date: 20130110
  Receipt Date: 20130110
  Transmission Date: 20140127
  Serious: Yes (Other)
  Sender: FDA-Public Use
  Company Number: US-009507513-1301USA002867

PATIENT
  Age: 18 Year
  Sex: Male

DRUGS (6)
  1. SINGULAIR [Suspect]
     Route: 048
  2. RITALIN [Suspect]
     Route: 048
  3. DEPAKOTE [Suspect]
     Route: 048
  4. PLAVIX [Suspect]
     Route: 048
  5. ABILIFY [Suspect]
     Route: 048
  6. PROTONIX [Concomitant]
     Route: 048

REACTIONS (2)
  - Gastric haemorrhage [Unknown]
  - Vomiting [Unknown]
